FAERS Safety Report 10340237 (Version 1)
Quarter: 2014Q3

REPORT INFORMATION
  Report Type: Spontaneous
  Country: US (occurrence: None)
  Receive Date: 20140722
  Receipt Date: 20140722
  Transmission Date: 20150326
  Serious: Yes (Other)
  Sender: FDA-Public Use
  Company Number: 1252232

PATIENT
  Age: 52 Year
  Sex: Female
  Weight: 52.62 kg

DRUGS (4)
  1. ELAVIL [Concomitant]
     Active Substance: AMITRIPTYLINE HYDROCHLORIDE
  2. TAGAMET [Concomitant]
     Active Substance: CIMETIDINE
  3. UMECTA [Suspect]
     Active Substance: HYALURONATE SODIUM\UREA
     Indication: DRY SKIN
     Dosage: TOP. APP. ONCE DAILY
     Route: 061
  4. ELMIRON [Concomitant]
     Active Substance: PENTOSAN POLYSULFATE SODIUM

REACTIONS (1)
  - Adverse reaction [None]

NARRATIVE: CASE EVENT DATE: 20130918
